FAERS Safety Report 6966366-3 (Version None)
Quarter: 2010Q3

REPORT INFORMATION
  Report Type: 
  Country: None (occurrence: None)
  Receive Date: 20100903
  Receipt Date: 20100825
  Transmission Date: 20110219
  Serious: Yes (Other)
  Sender: FDA-Public Use
  Company Number: PHHY2010US53964

PATIENT
  Sex: Female

DRUGS (4)
  1. EXTAVIA [Suspect]
     Indication: MULTIPLE SCLEROSIS
     Dosage: 0.25 MG, QOD
     Route: 058
     Dates: start: 20100128
  2. IBUPROFEN [Concomitant]
     Dosage: 600 MG
  3. NEURONTIN [Concomitant]
     Dosage: 400 MG
  4. GOODYS [Concomitant]
     Dosage: Q6/PRNMV1

REACTIONS (2)
  - ROAD TRAFFIC ACCIDENT [None]
  - WEIGHT INCREASED [None]
